FAERS Safety Report 8840217 (Version 1)
Quarter: 2012Q4

REPORT INFORMATION
  Report Type: 
  Country: US (occurrence: US)
  Receive Date: 20121015
  Receipt Date: 20121015
  Transmission Date: 20130627
  Serious: No
  Sender: FDA-Public Use
  Company Number: US-009507513-1210USA001474

PATIENT
  Age: 11 Year
  Sex: Female

DRUGS (1)
  1. ASMANEX TWISTHALER [Suspect]
     Dosage: UNK
     Route: 055
     Dates: start: 201209

REACTIONS (2)
  - Drug ineffective [Unknown]
  - Product quality issue [Unknown]
